FAERS Safety Report 4571656-8 (Version None)
Quarter: 2005Q1

REPORT INFORMATION
  Report Type: 
  Country: None (occurrence: None)
  Receive Date: 20050207
  Receipt Date: 20050128
  Transmission Date: 20050727
  Serious: Yes (Other)
  Sender: FDA-Public Use
  Company Number: PHNU2005DE00736

PATIENT
  Sex: Female

DRUGS (1)
  1. VOLTAREN DOLO [Suspect]
     Indication: BACK PAIN
     Dosage: 25 MG, ONCE/SINGLE
     Route: 048
     Dates: start: 20050101, end: 20050101

REACTIONS (3)
  - CIRCULATORY COLLAPSE [None]
  - KIDNEY INFECTION [None]
  - LOSS OF CONSCIOUSNESS [None]
